FAERS Safety Report 6536501-X (Version None)
Quarter: 2010Q1

REPORT INFORMATION
  Report Type: 
  Country: None (occurrence: None)
  Receive Date: 20100106
  Receipt Date: 20091230
  Transmission Date: 20100710
  Serious: Yes (Other)
  Sender: FDA-Public Use
  Company Number: A0837073A

PATIENT
  Age: 28 Year
  Sex: Male

DRUGS (1)
  1. CAFFEINE TABLET (CAFFEINE) [Suspect]
     Indication: DRUG USE FOR UNKNOWN INDICATION
     Dosage: INHALED
     Route: 055

REACTIONS (3)
  - EYE HAEMORRHAGE [None]
  - INCORRECT ROUTE OF DRUG ADMINISTRATION [None]
  - INTENTIONAL DRUG MISUSE [None]
